FAERS Safety Report 23989247 (Version 2)
Quarter: 2024Q2

REPORT INFORMATION
  Report Type: Report from Study
  Country: AR (occurrence: AR)
  Receive Date: 20240619
  Receipt Date: 20240621
  Transmission Date: 20240715
  Serious: Yes (Hospitalization)
  Sender: FDA-Public Use
  Company Number: AR-002147023-NVSC2024AR126445

PATIENT
  Age: 44 Year
  Sex: Female

DRUGS (2)
  1. ILARIS [Suspect]
     Active Substance: CANAKINUMAB
     Indication: Still^s disease
     Dosage: 150 MG, QMO
     Route: 058
     Dates: start: 20240213
  2. ILARIS [Suspect]
     Active Substance: CANAKINUMAB
     Dosage: 300 MG (MONTHLY)
     Route: 058

REACTIONS (4)
  - Pulmonary oedema [Unknown]
  - Pleural effusion [Unknown]
  - Pneumonia [Unknown]
  - Drug ineffective [Unknown]

NARRATIVE: CASE EVENT DATE: 20240601
